FAERS Safety Report 24164890 (Version 1)
Quarter: 2024Q3

REPORT INFORMATION
  Report Type: Report from Study
  Country: MX (occurrence: MX)
  Receive Date: 20240801
  Receipt Date: 20240801
  Transmission Date: 20241017
  Serious: Yes (Disabling)
  Sender: ABBVIE
  Company Number: MX-ABBVIE-5862739

PATIENT
  Age: 49 Year
  Sex: Female
  Weight: 98 kg

DRUGS (4)
  1. HUMIRA [Suspect]
     Active Substance: ADALIMUMAB
     Indication: Psoriasis
     Dosage: 40 MG
     Route: 058
     Dates: start: 20220815, end: 20240611
  2. Prikul [Concomitant]
     Indication: Arthritis reactive
     Dosage: START DATE TEXT: UNKNOWN
  3. Ubeia [Concomitant]
     Indication: Arthritis reactive
     Dosage: START DATE TEXT: UNKNOWN
  4. DOLOCARTIGEN [Concomitant]
     Indication: Arthritis reactive
     Dosage: START DATE TEXT: UNKNOWN

REACTIONS (3)
  - Gait inability [Not Recovered/Not Resolved]
  - Pain in extremity [Not Recovered/Not Resolved]
  - Pruritus [Not Recovered/Not Resolved]

NARRATIVE: CASE EVENT DATE: 20240601
